FAERS Safety Report 24368418 (Version 1)
Quarter: 2024Q3

REPORT INFORMATION
  Report Type: Spontaneous
  Country: US (occurrence: US)
  Receive Date: 20240926
  Receipt Date: 20240926
  Transmission Date: 20241016
  Serious: No
  Sender: SANOFI AVENTIS
  Company Number: US-SA-2024SA271705

PATIENT
  Sex: Female

DRUGS (1)
  1. DUPIXENT [Suspect]
     Active Substance: DUPILUMAB
     Indication: Neurodermatitis
     Dosage: 300 MG, QOW
     Route: 058

REACTIONS (8)
  - Hyperhidrosis [Unknown]
  - Swollen tongue [Unknown]
  - Feeling hot [Unknown]
  - Dyspnoea [Unknown]
  - Dysphagia [Unknown]
  - Mouth swelling [Unknown]
  - Dizziness [Unknown]
  - Eye swelling [Unknown]
